FAERS Safety Report 9192464 (Version 2)
Quarter: 2013Q2

REPORT INFORMATION
  Report Type: Spontaneous
  Country: US (occurrence: US)
  Receive Date: 20130327
  Receipt Date: 20130424
  Transmission Date: 20140414
  Serious: Yes (Other)
  Sender: FDA-Public Use
  Company Number: US-PFIZER INC-2013095060

PATIENT
  Sex: Female

DRUGS (3)
  1. ZITHROMAX [Suspect]
     Indication: SINUSITIS
     Dosage: UNK
  2. ZITHROMAX [Suspect]
     Indication: TOOTH EXTRACTION
  3. PREDNISONE [Suspect]
     Indication: TOOTH EXTRACTION
     Dosage: UNK

REACTIONS (1)
  - Angioedema [Unknown]
